FAERS Safety Report 14741969 (Version 2)
Quarter: 2018Q2

REPORT INFORMATION
  Report Type: Report from Study
  Country: US (occurrence: US)
  Receive Date: 20180410
  Receipt Date: 20180417
  Transmission Date: 20180711
  Serious: Yes (Other)
  Sender: FDA-Public Use
  Company Number: PHEH2018US013276

PATIENT
  Sex: Female

DRUGS (1)
  1. GLEEVEC [Suspect]
     Active Substance: IMATINIB MESYLATE
     Indication: FULL BLOOD COUNT INCREASED
     Route: 065

REACTIONS (3)
  - Full blood count decreased [Unknown]
  - Chronic kidney disease [Unknown]
  - Product use in unapproved indication [Unknown]
